FAERS Safety Report 15781150 (Version 1)
Quarter: 2019Q1

REPORT INFORMATION
  Report Type: Report from Study
  Country: EG (occurrence: EG)
  Receive Date: 20190102
  Receipt Date: 20190102
  Transmission Date: 20190417
  Serious: Yes (Hospitalization)
  Sender: FDA-Public Use
  Company Number: EG-SA-2018SA394189

PATIENT
  Age: 7 Year
  Sex: Male

DRUGS (3)
  1. INSULIN GLARGINE [Suspect]
     Active Substance: INSULIN GLARGINE
     Indication: TYPE 1 DIABETES MELLITUS
     Dosage: 12 IU, QD
     Route: 058
     Dates: start: 201703
  2. ACTRAPID [Concomitant]
     Active Substance: INSULIN HUMAN
     Dosage: UNK, TID (6-8-6 I.U)
     Route: 065
     Dates: start: 201703
  3. TEGRETOL [Concomitant]
     Active Substance: CARBAMAZEPINE
     Dosage: UNK UNK, UNK
     Route: 065

REACTIONS (5)
  - Hypoglycaemia [Recovered/Resolved]
  - Hemiparesis [Recovered/Resolved]
  - Hypoglycaemia [Recovered/Resolved]
  - Cerebral artery embolism [Unknown]
  - Hemiplegia [Recovered/Resolved]

NARRATIVE: CASE EVENT DATE: 201708
